FAERS Safety Report 4395271-4 (Version None)
Quarter: 2004Q3

REPORT INFORMATION
  Report Type: 
  Country: None (occurrence: None)
  Receive Date: 20040706
  Receipt Date: 20040621
  Transmission Date: 20050211
  Serious: Yes (Disabling)
  Sender: FDA-Public Use
  Company Number: 04P-028-0264795-00

PATIENT
  Age: 59 Year
  Sex: Female
  Weight: 90.7194 kg

DRUGS (5)
  1. BIAXIN XL [Suspect]
     Indication: SINUSITIS
     Dosage: 1000 MG, 1 IN 1 D, PER ORAL
     Route: 048
     Dates: start: 20040525, end: 20040603
  2. PRAVASTATIN SODIUM [Concomitant]
  3. CONJUGATED ESTROGEN [Concomitant]
  4. MEDROXYPROGESTERONE ACETATE [Concomitant]
  5. NOVONAPROX EC [Concomitant]

REACTIONS (6)
  - ERYTHEMA [None]
  - JOINT SWELLING [None]
  - MYALGIA [None]
  - PAIN [None]
  - RASH PAPULAR [None]
  - RASH PRURITIC [None]
